FAERS Safety Report 24068747 (Version 1)
Quarter: 2024Q3

REPORT INFORMATION
  Report Type: Report from Study
  Country: US (occurrence: US)
  Receive Date: 20240710
  Receipt Date: 20240710
  Transmission Date: 20241017
  Serious: No
  Sender: ROCHE
  Company Number: US-ROCHE-3506279

PATIENT
  Age: 59 Year
  Sex: Male

DRUGS (10)
  1. VABYSMO [Suspect]
     Active Substance: FARICIMAB\FARICIMAB-SVOA
     Indication: Diabetic retinopathy
     Dosage: YES
     Route: 050
     Dates: start: 20230329
  2. VABYSMO [Suspect]
     Active Substance: FARICIMAB\FARICIMAB-SVOA
     Indication: Macular oedema
  3. HUMALOG [Concomitant]
     Active Substance: INSULIN LISPRO
  4. METOPROLOL [Concomitant]
     Active Substance: METOPROLOL
  5. ALLOPURINOL [Concomitant]
     Active Substance: ALLOPURINOL
  6. LOSARTAN [Concomitant]
     Active Substance: LOSARTAN
  7. ELIQUIS [Concomitant]
     Active Substance: APIXABAN
  8. FLUOXETINE [Concomitant]
     Active Substance: FLUOXETINE HYDROCHLORIDE
  9. ATORVASTATIN [Concomitant]
     Active Substance: ATORVASTATIN
  10. FARXIGA [Concomitant]
     Active Substance: DAPAGLIFLOZIN PROPANEDIOL

REACTIONS (2)
  - Off label use [Unknown]
  - No adverse event [Unknown]
